FAERS Safety Report 7043956-3 (Version None)
Quarter: 2010Q4

REPORT INFORMATION
  Report Type: 
  Country: None (occurrence: None)
  Receive Date: 20101008
  Receipt Date: 20101008
  Transmission Date: 20110411
  Serious: Yes (Life-Threatening, Hospitalization, Other)
  Sender: FDA-Public Use
  Company Number: None

PATIENT
  Age: 22 Year
  Sex: Male
  Weight: 63.5036 kg

DRUGS (4)
  1. CLONAZEPAM [Suspect]
     Indication: ANXIETY
     Dosage: 1-2 BID PO
     Route: 048
     Dates: start: 20100901, end: 20100903
  2. CLONAZEPAM [Suspect]
     Indication: DEPRESSION
     Dosage: 1-2 BID PO
     Route: 048
     Dates: start: 20100901, end: 20100903
  3. CLONAZEPAM [Suspect]
     Indication: ANXIETY
     Dosage: 1-2 BID PO
     Route: 048
     Dates: start: 20101003, end: 20101005
  4. CLONAZEPAM [Suspect]
     Indication: DEPRESSION
     Dosage: 1-2 BID PO
     Route: 048
     Dates: start: 20101003, end: 20101005

REACTIONS (13)
  - ABNORMAL BEHAVIOUR [None]
  - AGGRESSION [None]
  - ANGER [None]
  - BALANCE DISORDER [None]
  - COORDINATION ABNORMAL [None]
  - DISINHIBITION [None]
  - DYSARTHRIA [None]
  - DYSSTASIA [None]
  - JUDGEMENT IMPAIRED [None]
  - MOOD SWINGS [None]
  - PARADOXICAL DRUG REACTION [None]
  - RESTLESS LEGS SYNDROME [None]
  - SPEECH DISORDER [None]
